FAERS Safety Report 9325863 (Version 1)
Quarter: 2013Q2

REPORT INFORMATION
  Report Type: Spontaneous
  Country: CA (occurrence: CA)
  Receive Date: 20130604
  Receipt Date: 20130604
  Transmission Date: 20140414
  Serious: Yes (Other)
  Sender: FDA-Public Use
  Company Number: CA-PFIZER INC-2013168259

PATIENT
  Sex: 0

DRUGS (1)
  1. CHAMPIX [Suspect]
     Dosage: LOW DOSE, UNK

REACTIONS (1)
  - Drug dependence [Not Recovered/Not Resolved]
